FAERS Safety Report 19389797 (Version 1)
Quarter: 2021Q2

REPORT INFORMATION
  Report Type: Spontaneous
  Country: US (occurrence: US)
  Receive Date: 20210608
  Receipt Date: 20210608
  Transmission Date: 20210717
  Serious: No
  Sender: FDA-Public Use
  Company Number: US-AMGEN-USASP2021086480

PATIENT
  Sex: Female

DRUGS (1)
  1. PROLIA [Suspect]
     Active Substance: DENOSUMAB
     Indication: OSTEOPOROSIS POSTMENOPAUSAL
     Dosage: UNK
     Route: 065

REACTIONS (6)
  - Spinal deformity [Unknown]
  - Tooth extraction [Unknown]
  - Ear infection [Unknown]
  - Oral infection [Recovering/Resolving]
  - Cystitis [Unknown]
  - Body height decreased [Unknown]

NARRATIVE: CASE EVENT DATE: 2020
